FAERS Safety Report 5822420-0 (Version None)
Quarter: 2008Q3

REPORT INFORMATION
  Report Type: 
  Country: None (occurrence: None)
  Receive Date: 20080723
  Receipt Date: 20080723
  Transmission Date: 20090109
  Serious: Yes (Other)
  Sender: FDA-Public Use
  Company Number: None

PATIENT
  Sex: Male
  Weight: 102 kg

DRUGS (2)
  1. ZOLEDRONIC ACID [Suspect]
     Indication: RENAL CANCER METASTATIC
     Dosage: 4MG EVERY 4 WEEKS IV
     Route: 042
     Dates: start: 20031117, end: 20040823
  2. INTERLEUKEN 2, 22MU VIAL CHIRON [Suspect]
     Indication: RENAL CANCER METASTATIC
     Dosage: 7MU/M2 5 DAYS A WK 3 OF EVERY 4 WKS SC
     Route: 058
     Dates: start: 20031117, end: 20040823

REACTIONS (6)
  - ANOREXIA [None]
  - DISEASE PROGRESSION [None]
  - NAUSEA [None]
  - RENAL CANCER METASTATIC [None]
  - VOMITING [None]
  - WEIGHT DECREASED [None]
